FAERS Safety Report 4790112-5 (Version None)
Quarter: 2005Q4

REPORT INFORMATION
  Report Type: 
  Country: None (occurrence: None)
  Receive Date: 20051005
  Receipt Date: 20051005
  Transmission Date: 20060501
  Serious: Yes (Other)
  Sender: FDA-Public Use
  Company Number: None

PATIENT
  Age: 54 Year
  Sex: Male
  Weight: 135.9884 kg

DRUGS (6)
  1. OXYCONTIN [Suspect]
     Indication: ARTHRITIS
     Dosage: ONE PO BID
     Route: 048
     Dates: start: 20050925, end: 20051004
  2. OXYCONTIN [Suspect]
     Indication: PAIN
     Dosage: ONE PO BID
     Route: 048
     Dates: start: 20050925, end: 20051004
  3. AVALIDE [Concomitant]
  4. AVANDIA [Concomitant]
  5. LANTUS [Concomitant]
  6. HUMALOG [Concomitant]

REACTIONS (1)
  - INADEQUATE ANALGESIA [None]
